FAERS Safety Report 9658994 (Version 2)
Quarter: 2013Q4

REPORT INFORMATION
  Report Type: Spontaneous
  Country: US (occurrence: US)
  Receive Date: 20131031
  Receipt Date: 20131118
  Transmission Date: 20140711
  Serious: No
  Sender: FDA-Public Use
  Company Number: US-DRREDDYS-USA/USA/13/0035223

PATIENT
  Age: 70 Year
  Sex: Female
  Weight: 61.29 kg

DRUGS (1)
  1. RANITIDINE TABLETS 150 MG OTC [Suspect]
     Indication: ANTACID THERAPY
     Route: 048
     Dates: start: 20131010

REACTIONS (2)
  - Drug ineffective [Unknown]
  - Product quality issue [Unknown]
